FAERS Safety Report 6244510-3 (Version None)
Quarter: 2009Q2

REPORT INFORMATION
  Report Type: 
  Country: None (occurrence: None)
  Receive Date: 20090619
  Receipt Date: 20090506
  Transmission Date: 20091009
  Serious: No
  Sender: FDA-Public Use
  Company Number: ALL1-2009-01291

PATIENT
  Sex: Male

DRUGS (1)
  1. VYVANSE [Suspect]
     Dosage: 1X/DAY:QD (1/2 CAPSULE), ORAL
     Route: 048
     Dates: start: 20090501

REACTIONS (2)
  - DRUG PRESCRIBING ERROR [None]
  - EYE IRRITATION [None]
